FAERS Safety Report 11074146 (Version 1)
Quarter: 2015Q2

REPORT INFORMATION
  Report Type: Spontaneous
  Country: DE (occurrence: DE)
  Receive Date: 20150429
  Receipt Date: 20150429
  Transmission Date: 20150821
  Serious: Yes (Other)
  Sender: FDA-Public Use
  Company Number: DE-BAYER-2015-022543

PATIENT
  Age: 81 Year
  Sex: Female
  Weight: 100 kg

DRUGS (2)
  1. ADEMPAS [Suspect]
     Active Substance: RIOCIGUAT
     Indication: PULMONARY HYPERTENSION
     Dosage: 2 MG, UNK
     Dates: start: 201406
  2. XARELTO [Suspect]
     Active Substance: RIVAROXABAN
     Indication: PULMONARY HYPERTENSION
     Dosage: 20 MG, UNK
     Dates: start: 201401

REACTIONS (3)
  - Product use issue [None]
  - Iron deficiency anaemia [Recovering/Resolving]
  - Melaena [Recovered/Resolved]

NARRATIVE: CASE EVENT DATE: 201407
